FAERS Safety Report 25137510 (Version 1)
Quarter: 2025Q1

REPORT INFORMATION
  Report Type: Other
  Country: FR (occurrence: FR)
  Receive Date: 20250329
  Receipt Date: 20250329
  Transmission Date: 20250409
  Serious: Yes (Hospitalization)
  Sender: ZYDUS PHARM
  Company Number: None

PATIENT

DRUGS (14)
  1. LANSOPRAZOLE [Suspect]
     Active Substance: LANSOPRAZOLE
     Indication: Product used for unknown indication
     Route: 048
     Dates: start: 20240611
  2. FUROSEMIDE [Suspect]
     Active Substance: FUROSEMIDE
     Indication: Acute pulmonary oedema
     Route: 042
     Dates: start: 20240614, end: 20240614
  3. FUROSEMIDE [Suspect]
     Active Substance: FUROSEMIDE
     Route: 048
     Dates: start: 20240614, end: 20240618
  4. ITRACONAZOLE [Suspect]
     Active Substance: ITRACONAZOLE
     Indication: Bronchopulmonary aspergillosis allergic
     Route: 048
     Dates: start: 202309
  5. PREDNISONE [Suspect]
     Active Substance: PREDNISONE
     Indication: Rheumatoid arthritis
     Route: 048
     Dates: start: 20240615
  6. ENOXAPARIN SODIUM [Concomitant]
     Active Substance: ENOXAPARIN SODIUM
     Indication: Product used for unknown indication
     Route: 058
     Dates: start: 20240611
  7. DILTIAZEM [Concomitant]
     Active Substance: DILTIAZEM
     Indication: Product used for unknown indication
     Route: 048
     Dates: start: 20240611
  8. PHLOROGLUCINOL\1,3,5-TRIMETHOXYBENZENE [Concomitant]
     Active Substance: PHLOROGLUCINOL\1,3,5-TRIMETHOXYBENZENE
     Indication: Abdominal pain
     Route: 048
     Dates: start: 20240611
  9. MORPHINE SULFATE [Concomitant]
     Active Substance: MORPHINE SULFATE
     Indication: Product used for unknown indication
     Route: 048
  10. ACETAMINOPHEN [Concomitant]
     Active Substance: ACETAMINOPHEN
     Indication: Pain
     Route: 048
  11. BECLOMETHASONE DIPROPIONATE [Concomitant]
     Active Substance: BECLOMETHASONE DIPROPIONATE
     Indication: Rhinitis
     Route: 045
  12. DESLORATADINE [Concomitant]
     Active Substance: DESLORATADINE
     Indication: Product used for unknown indication
     Route: 048
  13. CEFOTAXIME SODIUM [Concomitant]
     Active Substance: CEFOTAXIME SODIUM
     Indication: Colitis
     Route: 065
     Dates: start: 20240618, end: 20240620
  14. NAPROXEN [Concomitant]
     Active Substance: NAPROXEN
     Indication: Polyarthritis
     Route: 048
     Dates: start: 202405, end: 20240606

REACTIONS (1)
  - Hypokalaemia [Recovered/Resolved]

NARRATIVE: CASE EVENT DATE: 20240620
